FAERS Safety Report 14934837 (Version 1)
Quarter: 2018Q2

REPORT INFORMATION
  Report Type: Spontaneous
  Country: US (occurrence: US)
  Receive Date: 20180524
  Receipt Date: 20180524
  Transmission Date: 20180711
  Serious: Yes (Life-Threatening, Hospitalization)
  Sender: FDA-Public Use
  Company Number: US-TEVA-2018-US-895010

PATIENT
  Age: 30 Year
  Sex: Female

DRUGS (1)
  1. DOXEPIN [Suspect]
     Active Substance: DOXEPIN
     Dosage: TWO EMPTY BOTTLES OF DOXEPIN WERE FOUND AND APPROXIMATELY 3000MG OF THE DRUG WAS UNACCOUNTED, SUG...
     Route: 048

REACTIONS (10)
  - Electrocardiogram QRS complex prolonged [Recovered/Resolved]
  - Pneumonia aspiration [Unknown]
  - Electrocardiogram QT prolonged [Recovered/Resolved]
  - Pupillary reflex impaired [Recovered/Resolved]
  - Cardiac arrest [Recovered/Resolved]
  - Overdose [Recovering/Resolving]
  - Toxicity to various agents [Recovering/Resolving]
  - Unresponsive to stimuli [Recovered/Resolved]
  - Bradycardia [Recovered/Resolved]
  - Muscle twitching [Recovered/Resolved]
